FAERS Safety Report 15698831 (Version 10)
Quarter: 2019Q3

REPORT INFORMATION
  Report Type: Spontaneous
  Country: US (occurrence: US)
  Receive Date: 20181207
  Receipt Date: 20190821
  Transmission Date: 20191004
  Serious: No
  Sender: FDA-Public Use
  Company Number: US-PFIZER INC-2018499507

PATIENT
  Age: 26 Year
  Sex: Female
  Weight: 64 kg

DRUGS (4)
  1. LYRICA [Suspect]
     Active Substance: PREGABALIN
     Indication: NEUROPATHY PERIPHERAL
     Dosage: 300 MG, 3X/DAY
     Route: 048
  2. LYRICA [Suspect]
     Active Substance: PREGABALIN
     Indication: PAIN
     Dosage: 600 MG, 3X/DAY
     Route: 048
  3. LYRICA [Suspect]
     Active Substance: PREGABALIN
     Dosage: 600 MG, 3X/DAY (TWO 300 MG CAPSULES THREE TIMES A DAY)
     Route: 048
  4. LYRICA [Suspect]
     Active Substance: PREGABALIN
     Dosage: 600 MG, 3X/DAY
     Route: 048

REACTIONS (10)
  - Prescribed overdose [Unknown]
  - Pre-existing condition improved [Unknown]
  - Arthralgia [Unknown]
  - Swelling [Unknown]
  - Pain in extremity [Unknown]
  - Product dose omission [Unknown]
  - Therapeutic response unexpected [Unknown]
  - Ligament sprain [Unknown]
  - Therapeutic product effect incomplete [Unknown]
  - Intentional overdose [Unknown]
